FAERS Safety Report 9006584 (Version 2)
Quarter: 2013Q1

REPORT INFORMATION
  Report Type: Spontaneous
  Country: US (occurrence: US)
  Receive Date: 20130110
  Receipt Date: 20130322
  Transmission Date: 20140127
  Serious: Yes (Death)
  Sender: FDA-Public Use
  Company Number: US-PFIZER INC-2013007190

PATIENT
  Age: 44 Year
  Sex: Male

DRUGS (6)
  1. HYDROXYZINE PAMOATE [Suspect]
     Dosage: UNK
     Route: 048
  2. TEMAZEPAM [Suspect]
     Dosage: UNK
     Route: 048
  3. FLUOXETINE HYDROCHLORIDE [Suspect]
     Dosage: UNK
     Route: 048
  4. OLANZAPINE [Suspect]
     Dosage: UNK
     Route: 048
  5. CLONAZEPAM [Suspect]
     Dosage: UNK
     Route: 048
  6. ETHANOL [Suspect]
     Dosage: UNK
     Route: 048

REACTIONS (1)
  - Drug abuse [Fatal]
